FAERS Safety Report 5261209-0 (Version None)
Quarter: 2007Q1

REPORT INFORMATION
  Report Type: 
  Country: None (occurrence: None)
  Receive Date: 20070309
  Receipt Date: 20070225
  Transmission Date: 20070707
  Serious: Yes (Other)
  Sender: FDA-Public Use
  Company Number: EG-PFIZER INC-2007015201

PATIENT
  Age: 40 Year
  Sex: Male

DRUGS (2)
  1. DALACIN S [Suspect]
     Indication: BACTERIAL INFECTION
     Route: 042
     Dates: start: 20070128, end: 20070203
  2. COLCHICINE [Concomitant]
     Route: 048

REACTIONS (5)
  - DIARRHOEA [None]
  - GASTRITIS [None]
  - NAUSEA [None]
  - PSEUDOMEMBRANOUS COLITIS [None]
  - VOMITING [None]
